FAERS Safety Report 12121341 (Version 1)
Quarter: 2016Q1

REPORT INFORMATION
  Report Type: Spontaneous
  Country: US (occurrence: US)
  Receive Date: 20160226
  Receipt Date: 20160226
  Transmission Date: 20160526
  Serious: Yes (Other)
  Sender: FDA-Public Use
  Company Number: US-TEVA-636955USA

PATIENT
  Age: 37 Year
  Sex: Female
  Weight: 104.42 kg

DRUGS (8)
  1. TURMERIC [Suspect]
     Active Substance: TURMERIC
     Dosage: 500 MILLIGRAM DAILY;
     Route: 065
     Dates: start: 2016
  2. ESCITALOPRAM [Suspect]
     Active Substance: ESCITALOPRAM OXALATE
     Dosage: 20 MILLIGRAM DAILY;
     Route: 065
  3. GINGER ROOT/VITAMIN B6 [Suspect]
     Active Substance: DIETARY SUPPLEMENT
     Dosage: 150 MILLIGRAM DAILY;
     Route: 065
     Dates: start: 2016
  4. BENADRYL [Suspect]
     Active Substance: DIPHENHYDRAMINE HYDROCHLORIDE
     Indication: HYPERSENSITIVITY
     Dosage: 25 MILLIGRAM DAILY;
     Route: 065
  5. DULOXETINE. [Suspect]
     Active Substance: DULOXETINE
     Indication: FIBROMYALGIA
     Route: 065
     Dates: start: 2015
  6. LYRICA [Suspect]
     Active Substance: PREGABALIN
     Indication: FIBROMYALGIA
     Route: 065
     Dates: start: 2015
  7. CELEXA [Suspect]
     Active Substance: CITALOPRAM HYDROBROMIDE
     Indication: FIBROMYALGIA
     Dosage: 40 MILLIGRAM DAILY;
     Route: 065
     Dates: start: 2016
  8. PROBIOTIC [Suspect]
     Active Substance: PROBIOTICS NOS
     Indication: RHEUMATOID ARTHRITIS
     Route: 065
     Dates: start: 2015

REACTIONS (3)
  - Lower respiratory tract infection [Unknown]
  - Bronchitis [Unknown]
  - Sinusitis [Unknown]

NARRATIVE: CASE EVENT DATE: 201601
